FAERS Safety Report 5051635-7 (Version None)
Quarter: 2006Q3

REPORT INFORMATION
  Report Type: 
  Country: None (occurrence: None)
  Receive Date: 20060714
  Receipt Date: 20060707
  Transmission Date: 20061208
  Serious: Yes (Disabling)
  Sender: FDA-Public Use
  Company Number: FR-GLAXOSMITHKLINE-B0430859A

PATIENT
  Age: 45 Year
  Sex: Male

DRUGS (2)
  1. ZYBAN [Suspect]
     Dosage: 150MG VARIABLE DOSE
     Route: 048
  2. METHADONE HCL [Concomitant]
     Dosage: 140MG PER DAY
     Route: 065

REACTIONS (3)
  - DRUG INTOLERANCE [None]
  - FATIGUE [None]
  - TRANSAMINASES INCREASED [None]
